FAERS Safety Report 9994331 (Version 1)
Quarter: 2014Q1

REPORT INFORMATION
  Report Type: Spontaneous
  Country: DE (occurrence: DE)
  Receive Date: 20140311
  Receipt Date: 20140311
  Transmission Date: 20141002
  Serious: Yes (Hospitalization)
  Sender: FDA-Public Use
  Company Number: GXKR2014DE001169

PATIENT
  Age: 32 Year
  Sex: Female
  Weight: 59 kg

DRUGS (1)
  1. ETHINYLESTRADIOL + LEVONORGESTREL [Suspect]
     Indication: CONTRACEPTION
     Dosage: UNK
     Route: 048
     Dates: start: 201305

REACTIONS (1)
  - Tachycardia [Recovered/Resolved]
